FAERS Safety Report 13819539 (Version 2)
Quarter: 2018Q1

REPORT INFORMATION
  Report Type: Report from Study
  Country: US (occurrence: US)
  Receive Date: 20170731
  Receipt Date: 20180201
  Transmission Date: 20180508
  Serious: No
  Sender: FDA-Public Use
  Company Number: US-EXELIXIS-CABO-17008955

PATIENT
  Age: 78 Year
  Sex: Male

DRUGS (26)
  1. ASA [Concomitant]
     Active Substance: ASPIRIN
  2. CALCIUM CARBONATE. [Concomitant]
     Active Substance: CALCIUM CARBONATE
  3. OXYCODONE [Concomitant]
     Active Substance: OXYCODONE
  4. ZOMETA [Concomitant]
     Active Substance: ZOLEDRONIC ACID
  5. ELAXIC [Concomitant]
  6. ACCUPRIL [Concomitant]
     Active Substance: QUINAPRIL HYDROCHLORIDE
  7. GLUCOPHAGE [Concomitant]
     Active Substance: METFORMIN HYDROCHLORIDE
  8. CABOMETYX [Suspect]
     Active Substance: CABOZANTINIB S-MALATE
     Indication: RENAL CANCER
     Dosage: 60 MG, QD
     Route: 048
     Dates: start: 20170227
  9. ASCORBIC ACID. [Concomitant]
     Active Substance: ASCORBIC ACID
  10. NOVOLOG [Concomitant]
     Active Substance: INSULIN ASPART
  11. COMPAZINE [Concomitant]
     Active Substance: PROCHLORPERAZINE MALEATE
  12. DIMETHICON [Concomitant]
  13. LOPRESSOR [Concomitant]
     Active Substance: METOPROLOL TARTRATE
  14. PROSCAR [Concomitant]
     Active Substance: FINASTERIDE
  15. LEVEMIR [Concomitant]
     Active Substance: INSULIN DETEMIR
  16. LEVOTHYROXINE. [Concomitant]
     Active Substance: LEVOTHYROXINE
  17. MENTHOL. [Concomitant]
     Active Substance: MENTHOL
  18. ALOE VERA [Concomitant]
     Active Substance: ALOE VERA LEAF
  19. PREDNISONE. [Concomitant]
     Active Substance: PREDNISONE
  20. CABOMETYX [Suspect]
     Active Substance: CABOZANTINIB S-MALATE
     Dosage: 40 MG, QD
     Route: 048
     Dates: start: 201703, end: 201707
  21. AMIODARONE [Concomitant]
     Active Substance: AMIODARONE
  22. FOLIC ACID. [Concomitant]
     Active Substance: FOLIC ACID
  23. HYDROXYZINE [Concomitant]
     Active Substance: HYDROXYZINE HYDROCHLORIDE
  24. PROTONIX [Concomitant]
     Active Substance: PANTOPRAZOLE SODIUM
  25. CHOLECALCIFEROL [Concomitant]
     Active Substance: CHOLECALCIFEROL
  26. ENOXAPARIN [Concomitant]
     Active Substance: ENOXAPARIN

REACTIONS (5)
  - Feeding disorder [Unknown]
  - Blister [Unknown]
  - Hypoacusis [Unknown]
  - Oral pain [Unknown]
  - Speech disorder [Unknown]

NARRATIVE: CASE EVENT DATE: 20170314
